FAERS Safety Report 24222122 (Version 2)
Quarter: 2024Q3

REPORT INFORMATION
  Report Type: Spontaneous
  Country: ES (occurrence: ES)
  Receive Date: 20240819
  Receipt Date: 20240913
  Transmission Date: 20241017
  Serious: Yes (Hospitalization)
  Sender: TEVA
  Company Number: None

PATIENT
  Age: 83 Year
  Sex: Male

DRUGS (1)
  1. FINASTERIDE [Suspect]
     Active Substance: FINASTERIDE
     Indication: Benign prostatic hyperplasia
     Dosage: FINASTERIDA (2624A)
     Route: 048
     Dates: start: 20131113

REACTIONS (1)
  - Hormone receptor positive breast cancer [Recovering/Resolving]

NARRATIVE: CASE EVENT DATE: 20240510
